FAERS Safety Report 13174525 (Version 1)
Quarter: 2017Q1

REPORT INFORMATION
  Report Type: Spontaneous
  Country: US (occurrence: US)
  Receive Date: 20170201
  Receipt Date: 20170201
  Transmission Date: 20170428
  Serious: No
  Sender: FDA-Public Use
  Company Number: US-BAYER-2017-004727

PATIENT
  Age: 33 Year
  Sex: Female

DRUGS (3)
  1. DOXYCYCLINE. [Suspect]
     Active Substance: DOXYCYCLINE
     Indication: ACNE CYSTIC
     Dosage: 100 MG, BID
     Route: 048
  2. BENZOYL PEROXIDE. [Suspect]
     Active Substance: BENZOYL PEROXIDE
     Indication: ACNE CYSTIC
     Dosage: 5 %, UNK
     Route: 061
  3. CLINDAMYCIN. [Suspect]
     Active Substance: CLINDAMYCIN
     Indication: ACNE CYSTIC
     Dosage: 1 %, UNK
     Route: 061

REACTIONS (1)
  - Drug ineffective [None]
